FAERS Safety Report 4613753-4 (Version None)
Quarter: 2005Q1

REPORT INFORMATION
  Report Type: 
  Country: None (occurrence: None)
  Receive Date: 20050321
  Receipt Date: 20050314
  Transmission Date: 20050727
  Serious: Yes (Life-Threatening, Hospitalization, Disabling)
  Sender: FDA-Public Use
  Company Number: US-MERCK-0503USA02203

PATIENT
  Age: 76 Year
  Sex: Female

DRUGS (6)
  1. FOSAMAX [Suspect]
     Indication: OSTEOPOROSIS
     Route: 048
     Dates: start: 20040901, end: 20040901
  2. FOSAMAX [Suspect]
     Route: 048
  3. ACIPHEX [Concomitant]
     Route: 065
  4. ATENOLOL [Concomitant]
     Route: 065
  5. TIMOLOL [Concomitant]
     Route: 065
  6. HYZAAR [Concomitant]
     Route: 048

REACTIONS (1)
  - CHEST PAIN [None]
